FAERS Safety Report 9924994 (Version 1)
Quarter: 2014Q1

REPORT INFORMATION
  Report Type: Spontaneous
  Country: NZ (occurrence: None)
  Receive Date: 20140221
  Receipt Date: 20140221
  Transmission Date: 20141002
  Serious: Yes (Hospitalization)
  Sender: FDA-Public Use
  Company Number: 2014AP001292

PATIENT
  Age: 63 Year
  Sex: Female

DRUGS (7)
  1. ALLOPURINOL (ALLOPURINOL) [Suspect]
     Indication: GOUT
  2. AMIODARONE (AMIODARONE) [Suspect]
  3. ASPIRIN (ACETYLSALICYLIC ACID) [Concomitant]
  4. SPIRONOLACTONE (SPIRONOLACTONE) [Concomitant]
  5. FUROSEMIDE (FUROSEMIDE) [Concomitant]
  6. METOPOLOL(METOPROLOL) [Concomitant]
  7. WARFRIN (WARFARIN) [Concomitant]

REACTIONS (18)
  - Drug reaction with eosinophilia and systemic symptoms [None]
  - Vasculitis cerebral [None]
  - Hyperthyroidism [None]
  - Pyrexia [None]
  - Gait disturbance [None]
  - Hemianopia homonymous [None]
  - Blood pressure decreased [None]
  - Heart rate decreased [None]
  - VIIth nerve paralysis [None]
  - Dysphagia [None]
  - Muscular weakness [None]
  - Eosinophilia [None]
  - Liver function test abnormal [None]
  - Weight decreased [None]
  - Alopecia [None]
  - Hyperthyroidism [None]
  - Blood creatinine increased [None]
  - Torsade de pointes [None]
